FAERS Safety Report 12234054 (Version 1)
Quarter: 2016Q2

REPORT INFORMATION
  Report Type: Spontaneous
  Country: US (occurrence: None)
  Receive Date: 20160401
  Receipt Date: 20160401
  Transmission Date: 20160815
  Serious: No
  Sender: FDA-Public Use
  Company Number: None

PATIENT

DRUGS (1)
  1. TRAMADOL. [Suspect]
     Active Substance: TRAMADOL

REACTIONS (4)
  - Abnormal behaviour [None]
  - Dizziness [None]
  - Contraindication to medical treatment [None]
  - Adverse drug reaction [None]
